FAERS Safety Report 17485075 (Version 1)
Quarter: 2020Q1

REPORT INFORMATION
  Report Type: Spontaneous
  Country: TR (occurrence: TR)
  Receive Date: 20200302
  Receipt Date: 20200302
  Transmission Date: 20200409
  Serious: Yes (Other)
  Sender: FDA-Public Use
  Company Number: TR-INCYTE CORPORATION-2020IN001699

PATIENT

DRUGS (6)
  1. ASA [Concomitant]
     Active Substance: ASPIRIN
     Indication: PRODUCT USED FOR UNKNOWN INDICATION
     Dosage: 100 MG, QW
     Route: 065
  2. JAKAVI [Suspect]
     Active Substance: RUXOLITINIB
     Dosage: 15 MG, BID (2 X 15 MG)
     Route: 065
  3. ANAGRELIDE. [Concomitant]
     Active Substance: ANAGRELIDE HYDROCHLORIDE
     Indication: PRODUCT USED FOR UNKNOWN INDICATION
     Dosage: 2 MG, QD (4 X 0.5 MG/ DAY)
     Route: 065
     Dates: start: 201002, end: 201707
  4. JAKAVI [Suspect]
     Active Substance: RUXOLITINIB
     Indication: MYELOFIBROSIS
     Dosage: 20 MG, BID (2 X 20 MG)
     Route: 065
     Dates: start: 20170923
  5. FOLIC ACID. [Concomitant]
     Active Substance: FOLIC ACID
     Indication: PRODUCT USED FOR UNKNOWN INDICATION
     Dosage: 5 MG, QD
     Route: 065
  6. ALLOPURINOL. [Concomitant]
     Active Substance: ALLOPURINOL
     Indication: PRODUCT USED FOR UNKNOWN INDICATION
     Dosage: 150 MG, QD (1 X 150 MG/ DAY)
     Route: 065

REACTIONS (18)
  - Appetite disorder [Recovered/Resolved]
  - Dizziness [Unknown]
  - Erythema [Recovered/Resolved]
  - Hypothyroidism [Recovered/Resolved]
  - Haemoglobin decreased [Unknown]
  - Back pain [Recovered/Resolved]
  - Chest discomfort [Recovered/Resolved]
  - Herpes zoster [Unknown]
  - Dyspnoea [Unknown]
  - Abdominal distension [Unknown]
  - White blood cell count decreased [Unknown]
  - Hot flush [Unknown]
  - Eye irritation [Unknown]
  - Cardiac murmur [Unknown]
  - Platelet count decreased [Unknown]
  - Pyrexia [Recovered/Resolved]
  - Respiratory tract infection [Not Recovered/Not Resolved]
  - Weight increased [Unknown]

NARRATIVE: CASE EVENT DATE: 20171023
